FAERS Safety Report 8013135-1 (Version None)
Quarter: 2011Q4

REPORT INFORMATION
  Report Type: 
  Country: None (occurrence: None)
  Receive Date: 20111229
  Receipt Date: 20111216
  Transmission Date: 20120403
  Serious: Yes (Other)
  Sender: FDA-Public Use
  Company Number: JP-SANOFI-AVENTIS-2011SA083938

PATIENT

DRUGS (2)
  1. ALLEGRA [Suspect]
     Route: 065
  2. AMARYL [Suspect]
     Route: 065

REACTIONS (1)
  - PANCYTOPENIA [None]
